FAERS Safety Report 20722448 (Version 2)
Quarter: 2022Q2

REPORT INFORMATION
  Report Type: Spontaneous
  Country: CO (occurrence: CO)
  Receive Date: 20220418
  Receipt Date: 20220427
  Transmission Date: 20220720
  Serious: Yes (Other)
  Sender: FDA-Public Use
  Company Number: CO-ALLERGAN-2212489US

PATIENT
  Sex: Male
  Weight: 74 kg

DRUGS (7)
  1. BOTOX [Suspect]
     Active Substance: ONABOTULINUMTOXINA
     Indication: Blepharospasm
     Dosage: UNK UNK, SINGLE
     Dates: start: 2019, end: 2019
  2. BOTOX [Suspect]
     Active Substance: ONABOTULINUMTOXINA
     Indication: Dystonia
  3. INSULIN NOS [Concomitant]
     Active Substance: INSULIN NOS
     Indication: Diabetes mellitus
     Dosage: 1.8 IU (INTERNATIONAL UNIT)
     Route: 058
     Dates: start: 2007
  4. LOSARTAN [Concomitant]
     Active Substance: LOSARTAN
     Indication: Hypertension
     Dosage: 50 MILLIGRAM
     Route: 048
     Dates: start: 1998
  5. NIFEDIPINE [Concomitant]
     Active Substance: NIFEDIPINE
     Indication: Hypertension
     Dosage: 10 MILLIGRAM
     Route: 048
     Dates: start: 1998
  6. LORAZEPAM [Concomitant]
     Active Substance: LORAZEPAM
     Indication: Blepharospasm
     Dosage: 1 MILLIGRAM
     Route: 048
     Dates: start: 2017
  7. INSULIN DEGLUDEC [Concomitant]
     Active Substance: INSULIN DEGLUDEC
     Indication: Diabetes mellitus
     Dosage: 26 IU (INTERNATIONAL UNIT)
     Route: 058
     Dates: start: 2007

REACTIONS (2)
  - Inguinal hernia [Recovering/Resolving]
  - Umbilical hernia [Unknown]

NARRATIVE: CASE EVENT DATE: 20210701
